FAERS Safety Report 5117241-0 (Version None)
Quarter: 2006Q3

REPORT INFORMATION
  Report Type: 
  Country: None (occurrence: None)
  Receive Date: 20060926
  Receipt Date: 20060905
  Transmission Date: 20061208
  Serious: Yes (Hospitalization, Other)
  Sender: FDA-Public Use
  Company Number: 2006026078

PATIENT
  Age: 61 Year
  Sex: Male

DRUGS (4)
  1. NEURONTIN [Suspect]
     Indication: BIPOLAR DISORDER
  2. DILANTIN [Suspect]
     Indication: CONVULSION
  3. LITHIUM (LITHIUM) [Suspect]
  4. PAMELOR [Suspect]
     Indication: DEPRESSION
     Dosage: 150 MG (1 IN 1 D)

REACTIONS (48)
  - ABASIA [None]
  - APHASIA [None]
  - ASTHENIA [None]
  - ATELECTASIS [None]
  - BIPOLAR DISORDER [None]
  - BLOOD ELECTROLYTES ABNORMAL [None]
  - BLOOD POTASSIUM ABNORMAL [None]
  - COGNITIVE DISORDER [None]
  - COMMUNICATION DISORDER [None]
  - DECUBITUS ULCER [None]
  - DEEP VEIN THROMBOSIS [None]
  - DEPRESSION [None]
  - DRUG INEFFECTIVE [None]
  - DRUG TOXICITY [None]
  - DYSPHONIA [None]
  - ENCEPHALOMALACIA [None]
  - FALL [None]
  - FATIGUE [None]
  - GUN SHOT WOUND [None]
  - HAEMODIALYSIS [None]
  - HAEMORRHAGE [None]
  - HEAD DEFORMITY [None]
  - HEAD INJURY [None]
  - HYPERKALAEMIA [None]
  - ILL-DEFINED DISORDER [None]
  - INCORRECT DOSE ADMINISTERED [None]
  - LOSS OF CONSCIOUSNESS [None]
  - LUNG INFILTRATION [None]
  - MEMORY IMPAIRMENT [None]
  - MENTAL STATUS CHANGES [None]
  - MINI MENTAL STATUS EXAMINATION ABNORMAL [None]
  - MUSCULAR WEAKNESS [None]
  - PNEUMONIA [None]
  - POST-TRAUMATIC EPILEPSY [None]
  - PYREXIA [None]
  - RENAL FAILURE ACUTE [None]
  - RENAL TUBULAR NECROSIS [None]
  - RESPIRATORY FAILURE [None]
  - RHABDOMYOLYSIS [None]
  - SINUS DISORDER [None]
  - SUBARACHNOID HAEMORRHAGE [None]
  - SUICIDAL IDEATION [None]
  - SUICIDE ATTEMPT [None]
  - THERAPEUTIC AGENT TOXICITY [None]
  - TRAUMATIC BRAIN INJURY [None]
  - UROSEPSIS [None]
  - VISION BLURRED [None]
  - WALKING AID USER [None]
